FAERS Safety Report 5811613-4 (Version None)
Quarter: 2008Q3

REPORT INFORMATION
  Report Type: 
  Country: None (occurrence: None)
  Receive Date: 20080714
  Receipt Date: 20080701
  Transmission Date: 20090109
  Serious: Yes (Death, Hospitalization)
  Sender: FDA-Public Use
  Company Number: 001301

PATIENT
  Age: 2 Year
  Sex: Female

DRUGS (7)
  1. BUSULFEX [Suspect]
     Indication: STEM CELL TRANSPLANT
     Dosage: 8.4 ML, DAILY DOSE
     Dates: start: 20071124, end: 20071127
  2. FLUDARABINE PHOSPHATE [Concomitant]
  3. MELPHALAN (MELPHALAN) [Concomitant]
  4. PHENYTOIN [Concomitant]
  5. MIRIMOSTIM (MACROPHAGE COLONY-STIMULATING FACTOR) [Concomitant]
  6. METHOTREXATE [Concomitant]
  7. TACROLIMUS [Concomitant]

REACTIONS (7)
  - ACUTE MYELOID LEUKAEMIA RECURRENT [None]
  - CONJUNCTIVITIS [None]
  - CORD BLOOD TRANSPLANT THERAPY [None]
  - DIARRHOEA [None]
  - IDIOPATHIC PNEUMONIA SYNDROME [None]
  - KERATITIS [None]
  - STOMATITIS [None]
